FAERS Safety Report 17892616 (Version 3)
Quarter: 2021Q4

REPORT INFORMATION
  Report Type: Report from Study
  Country: NL (occurrence: None)
  Receive Date: 20200613
  Receipt Date: 20211102
  Transmission Date: 20220303
  Serious: Yes (Hospitalization)
  Sender: FDA-Public Use
  Company Number: NL-ROCHE-2615425

PATIENT
  Age: 60 Year
  Sex: Female

DRUGS (2)
  1. ATEZOLIZUMAB [Suspect]
     Active Substance: ATEZOLIZUMAB
     Indication: Breast cancer
     Dosage: ON 06/NOV/2019, SHE RECEIVED LAST DOSE OF ATEZOLIZUMAB PRIOR TO ONSET OF SERIOUS ADVERSE EVENT.
     Route: 041
     Dates: start: 20190905
  2. CARBOPLATIN [Suspect]
     Active Substance: CARBOPLATIN
     Indication: Breast cancer
     Dosage: AREA UNDER CURVE (AUC) 1.5?ON 06/NOV/2019, SHE RECEIVED LAST DOSE OF CARBOPLATIN PRIOR TO ONSET OF S
     Route: 042
     Dates: start: 20190905

REACTIONS (2)
  - Oesophageal prosthesis insertion [Recovered/Resolved]
  - Stenosis [Recovered/Resolved]

NARRATIVE: CASE EVENT DATE: 20191128
